FAERS Safety Report 12275830 (Version 2)
Quarter: 2016Q2

REPORT INFORMATION
  Report Type: Report from Study
  Country: JP (occurrence: JP)
  Receive Date: 20160418
  Receipt Date: 20160621
  Transmission Date: 20160815
  Serious: Yes (Other)
  Sender: FDA-Public Use
  Company Number: JP-VIFOR (INTERNATIONAL) INC.-VIT-2016-01558

PATIENT
  Age: 81 Year
  Sex: Female

DRUGS (9)
  1. MIRCERA [Suspect]
     Active Substance: METHOXY POLYETHYLENE GLYCOL-EPOETIN BETA
     Indication: NEPHROGENIC ANAEMIA
     Route: 058
     Dates: start: 20121004
  2. BROTIZOLAM [Concomitant]
     Active Substance: BROTIZOLAM
     Route: 048
  3. ZESTRIL [Concomitant]
     Active Substance: LISINOPRIL
     Route: 048
  4. WARFARIN [Concomitant]
     Active Substance: WARFARIN
     Route: 048
  5. JZOLOFT [Concomitant]
     Active Substance: SERTRALINE HYDROCHLORIDE
     Route: 048
  6. LASIX [Concomitant]
     Active Substance: FUROSEMIDE
     Route: 048
  7. PARIET [Concomitant]
     Active Substance: RABEPRAZOLE SODIUM
     Route: 048
  8. CALBLOCK [Concomitant]
     Active Substance: AZELNIDIPINE
     Route: 048
  9. LANIRAPID [Concomitant]
     Active Substance: METILDIGOXIN
     Route: 048

REACTIONS (1)
  - Iron deficiency anaemia [Recovering/Resolving]

NARRATIVE: CASE EVENT DATE: 20130624
